FAERS Safety Report 13461945 (Version 1)
Quarter: 2017Q2

REPORT INFORMATION
  Report Type: Spontaneous
  Country: US (occurrence: US)
  Receive Date: 20170420
  Receipt Date: 20170420
  Transmission Date: 20170830
  Serious: Yes (Hospitalization)
  Sender: FDA-Public Use
  Company Number: None

PATIENT
  Age: 47 Year
  Sex: Female
  Weight: 56 kg

DRUGS (1)
  1. CISPLATIN. [Suspect]
     Active Substance: CISPLATIN
     Dates: end: 20170403

REACTIONS (8)
  - Therapy non-responder [None]
  - Abdominal pain [None]
  - Tooth abscess [None]
  - Gastroenteritis [None]
  - Fatigue [None]
  - Diarrhoea [None]
  - Asthenia [None]
  - Tooth infection [None]

NARRATIVE: CASE EVENT DATE: 20170408
